FAERS Safety Report 15775130 (Version 1)
Quarter: 2018Q4

REPORT INFORMATION
  Report Type: Spontaneous
  Country: NL (occurrence: NL)
  Receive Date: 20181231
  Receipt Date: 20181231
  Transmission Date: 20190205
  Serious: Yes (Hospitalization)
  Sender: FDA-Public Use
  Company Number: NL-TEVA-2018-NL-993024

PATIENT
  Age: 79 Year
  Sex: Male
  Weight: 102 kg

DRUGS (1)
  1. AMOXICILLINE/CLAVULAANZUUR TABLET, 500/125 MG (MILLIGRAM)AMOXICILLINE/ [Suspect]
     Active Substance: AMOXICILLIN\CLAVULANATE POTASSIUM
     Indication: CHOLECYSTITIS
     Dosage: 3 DOSAGE FORMS DAILY; 3X PER DAY
     Route: 065
     Dates: start: 20170904, end: 20170905

REACTIONS (3)
  - Dermatitis bullous [Recovered/Resolved]
  - Skin exfoliation [Recovered/Resolved]
  - Rash generalised [Recovered/Resolved]

NARRATIVE: CASE EVENT DATE: 20170904
